FAERS Safety Report 11962106 (Version 1)
Quarter: 2016Q1

REPORT INFORMATION
  Report Type: Spontaneous
  Country: AU (occurrence: AU)
  Receive Date: 20160126
  Receipt Date: 20160126
  Transmission Date: 20160526
  Serious: Yes (Other)
  Sender: FDA-Public Use
  Company Number: AU-WATSON-2016-00986

PATIENT
  Age: 25 Year
  Sex: Male

DRUGS (2)
  1. CLOZAPINE (UNKNOWN) [Suspect]
     Active Substance: CLOZAPINE
     Indication: SCHIZOPHRENIA
     Dosage: 300 MG, DAILY
     Route: 065
  2. CLOZAPINE (UNKNOWN) [Suspect]
     Active Substance: CLOZAPINE
     Dosage: 12.5 MG, DAILY TITRATED TO 300MG,DAILY
     Route: 065

REACTIONS (1)
  - Acute kidney injury [Recovered/Resolved]
